FAERS Safety Report 19282928 (Version 1)
Quarter: 2021Q2

REPORT INFORMATION
  Report Type: Spontaneous
  Country: RU (occurrence: RU)
  Receive Date: 20210521
  Receipt Date: 20210521
  Transmission Date: 20210717
  Serious: Yes (Other)
  Sender: FDA-Public Use
  Company Number: RU-ROCHE-2829803

PATIENT
  Sex: Female

DRUGS (45)
  1. HERCEPTIN [Suspect]
     Active Substance: TRASTUZUMAB
     Indication: PAIN
     Dosage: 6 MG/KG FOR THE NEXT CYCLE
     Route: 042
  2. HERCEPTIN [Suspect]
     Active Substance: TRASTUZUMAB
     Dosage: 1 DAY (MAINTENANCE DOSE) 30 MIN INFUSION
     Route: 041
     Dates: start: 20171010
  3. HERCEPTIN [Suspect]
     Active Substance: TRASTUZUMAB
     Route: 041
     Dates: start: 20171222
  4. HERCEPTIN [Suspect]
     Active Substance: TRASTUZUMAB
     Route: 058
     Dates: start: 20171128
  5. HERCEPTIN [Suspect]
     Active Substance: TRASTUZUMAB
     Route: 058
     Dates: start: 20210415
  6. PERJETA [Suspect]
     Active Substance: PERTUZUMAB
     Dosage: 1 DAY (MAINTENANCE DOSE) 30 MIN INFUSION
     Route: 041
     Dates: start: 20170822
  7. PERJETA [Suspect]
     Active Substance: PERTUZUMAB
     Dosage: 1 DAY (MAINTENANCE DOSE) 30 MIN INFUSION
     Route: 041
     Dates: start: 20171222
  8. PACLITAXEL. [Suspect]
     Active Substance: PACLITAXEL
     Indication: BREAST CANCER
     Route: 041
     Dates: start: 20170620
  9. PHOSPHOGLIV [Concomitant]
  10. HERCEPTIN [Suspect]
     Active Substance: TRASTUZUMAB
     Indication: BREAST CANCER
     Route: 041
     Dates: start: 20170620
  11. PERJETA [Suspect]
     Active Substance: PERTUZUMAB
     Dosage: 1 DAY (MAINTENANCE DOSE) 30 MIN INFUSION
     Route: 041
     Dates: start: 20170915
  12. PERJETA [Suspect]
     Active Substance: PERTUZUMAB
     Dosage: 1 DAY 30 MIN INFUSION
     Route: 041
     Dates: start: 20180112
  13. PERJETA [Suspect]
     Active Substance: PERTUZUMAB
     Dosage: MAINTENANCE THERAPY
     Route: 041
     Dates: start: 20180813
  14. PERJETA [Suspect]
     Active Substance: PERTUZUMAB
     Route: 041
     Dates: start: 20210415
  15. PACLITAXEL. [Suspect]
     Active Substance: PACLITAXEL
     Dosage: 1 DAY 3 H INFUSION WITH PREMEDICATION
     Route: 041
     Dates: start: 20171128
  16. TAMOXIFEN [Suspect]
     Active Substance: TAMOXIFEN
     Indication: BREAST CANCER
     Route: 065
  17. LETROZOLE. [Suspect]
     Active Substance: LETROZOLE
     Indication: BREAST CANCER
     Route: 065
  18. HERCEPTIN [Suspect]
     Active Substance: TRASTUZUMAB
     Route: 058
     Dates: start: 20210304
  19. HERCEPTIN [Suspect]
     Active Substance: TRASTUZUMAB
     Route: 058
     Dates: start: 20210506
  20. PERJETA [Suspect]
     Active Substance: PERTUZUMAB
     Indication: BREAST CANCER
     Dosage: 840 MG FOR THE FIRST CYCLE, AND THEN 420 MG
     Route: 041
     Dates: start: 20170620
  21. HERCEPTIN [Suspect]
     Active Substance: TRASTUZUMAB
     Dosage: 1 DAY (MAINTENANCE DOSE) 30 MIN INFUSION
     Route: 041
     Dates: start: 20170822
  22. PERJETA [Suspect]
     Active Substance: PERTUZUMAB
     Dosage: 1 DAY (MAINTENANCE DOSE) 30 MIN INFUSION
     Route: 041
     Dates: start: 20171031
  23. PERJETA [Suspect]
     Active Substance: PERTUZUMAB
     Dosage: 1 DAY (MAINTENANCE DOSE) 30 MIN INFUSION
     Route: 041
     Dates: start: 20171128
  24. PACLITAXEL. [Suspect]
     Active Substance: PACLITAXEL
     Dosage: 1 DAY 3 H INFUSION WITH PREMEDICATION
     Route: 041
     Dates: start: 20170915
  25. LETROZOLE. [Suspect]
     Active Substance: LETROZOLE
     Route: 065
     Dates: start: 20180813
  26. HERCEPTIN [Suspect]
     Active Substance: TRASTUZUMAB
     Dosage: 1 DAY (MAINTENANCE DOSE) 30 MIN INFUSION
     Route: 041
     Dates: start: 20170915
  27. PERJETA [Suspect]
     Active Substance: PERTUZUMAB
     Dosage: 1 DAY (MAINTENANCE DOSE) 30 MIN INFUSION
     Route: 041
     Dates: start: 20171010
  28. PACLITAXEL. [Suspect]
     Active Substance: PACLITAXEL
     Dosage: DAY 3 H INFUSION WITH PREMEDICATION
     Route: 041
     Dates: start: 20170822
  29. PACLITAXEL. [Suspect]
     Active Substance: PACLITAXEL
     Dosage: 1 DAY 3 H INFUSION WITH PREMEDICATION
     Route: 041
     Dates: start: 20171010
  30. HERCEPTIN [Suspect]
     Active Substance: TRASTUZUMAB
     Route: 058
     Dates: start: 20210325
  31. PERJETA [Suspect]
     Active Substance: PERTUZUMAB
     Dosage: 1 DAY (MAINTENANCE DOSE)
     Route: 041
     Dates: start: 20210506
  32. PACLITAXEL. [Suspect]
     Active Substance: PACLITAXEL
     Dosage: 1 DAY 3 H INFUSION WITH PREMEDICATION
     Route: 041
     Dates: start: 20170712
  33. DEXAMETHASONE. [Suspect]
     Active Substance: DEXAMETHASONE
     Indication: BREAST CANCER
     Route: 065
  34. HERCEPTIN [Suspect]
     Active Substance: TRASTUZUMAB
     Indication: BREAST CANCER
     Dosage: 1 DAY
     Route: 058
     Dates: start: 20171031
  35. PERJETA [Suspect]
     Active Substance: PERTUZUMAB
     Dosage: 1 DAY (MAINTENANCE DOSE)
     Route: 041
     Dates: start: 20210304
  36. PACLITAXEL. [Suspect]
     Active Substance: PACLITAXEL
     Dosage: 1 DAY 3 H INFUSION WITH PREMEDICATION
     Route: 041
     Dates: start: 20170802
  37. PACLITAXEL. [Suspect]
     Active Substance: PACLITAXEL
     Dosage: 1 DAY 3 H INFUSION WITH PREMEDICATION
     Route: 041
     Dates: start: 20171031
  38. TAXOL [Suspect]
     Active Substance: PACLITAXEL
     Indication: BREAST CANCER
     Route: 065
  39. AMIKACIN. [Concomitant]
     Active Substance: AMIKACIN
  40. HERCEPTIN [Suspect]
     Active Substance: TRASTUZUMAB
     Indication: BREAST CANCER
     Dosage: 1 DAY (MAINTENANCE DOSE) 30 MIN INFUSION
     Route: 041
     Dates: start: 20170712
  41. HERCEPTIN [Suspect]
     Active Substance: TRASTUZUMAB
     Dosage: 1 DAY (MAINTENANCE DOSE) 30 MIN INFUSION
     Route: 041
     Dates: start: 20170802
  42. HERCEPTIN [Suspect]
     Active Substance: TRASTUZUMAB
     Route: 041
     Dates: start: 20180112
  43. PERJETA [Suspect]
     Active Substance: PERTUZUMAB
     Dosage: 1 DAY (MAINTENANCE DOSE) 30 MIN INFUSION
     Route: 041
     Dates: start: 20170712
  44. PERJETA [Suspect]
     Active Substance: PERTUZUMAB
     Dosage: 1 DAY (MAINTENANCE DOSE) 30 MIN INFUSION
     Route: 041
     Dates: start: 20170802
  45. PERJETA [Suspect]
     Active Substance: PERTUZUMAB
     Dosage: 1 DAY (MAINTENANCE DOSE)
     Route: 041
     Dates: start: 20210325

REACTIONS (16)
  - Haemorrhoids [Unknown]
  - Hypertension [Unknown]
  - Musculoskeletal chest pain [Unknown]
  - Colitis [Unknown]
  - Osteosclerosis [Unknown]
  - Stomatitis [Unknown]
  - Cardiac failure congestive [Unknown]
  - Varicose vein [Unknown]
  - Ankylosing spondylitis [Unknown]
  - Autonomic nervous system imbalance [Unknown]
  - Gastrooesophageal reflux disease [Unknown]
  - Dyslipidaemia [Unknown]
  - Hepatitis toxic [Unknown]
  - Leukopenia [Unknown]
  - Ill-defined disorder [Unknown]
  - Cardiomyopathy [Unknown]
